FAERS Safety Report 21929660 (Version 1)
Quarter: 2023Q1

REPORT INFORMATION
  Report Type: Spontaneous
  Country: IR (occurrence: IR)
  Receive Date: 20230131
  Receipt Date: 20230131
  Transmission Date: 20230417
  Serious: Yes (Death, Hospitalization, Other)
  Sender: FDA-Public Use
  Company Number: None

PATIENT
  Sex: Female

DRUGS (1)
  1. LIDOCAINE [Suspect]
     Active Substance: LIDOCAINE
     Indication: Product used for unknown indication
     Route: 048

REACTIONS (10)
  - Agitation [Fatal]
  - Confusional state [Fatal]
  - Mydriasis [Fatal]
  - Hypotension [Fatal]
  - Sinus tachycardia [Fatal]
  - Generalised tonic-clonic seizure [Fatal]
  - Metabolic acidosis [Fatal]
  - Cardio-respiratory arrest [Fatal]
  - Conduction disorder [Fatal]
  - Systemic toxicity [Fatal]
